FAERS Safety Report 23805591 (Version 2)
Quarter: 2024Q2

REPORT INFORMATION
  Report Type: Spontaneous
  Country: US (occurrence: US)
  Receive Date: 20240502
  Receipt Date: 20240524
  Transmission Date: 20240716
  Serious: Yes (Hospitalization)
  Sender: FDA-Public Use
  Company Number: US-TEVA-VS-3190646

PATIENT
  Age: 77 Year
  Sex: Male

DRUGS (2)
  1. RANOLAZINE [Suspect]
     Active Substance: RANOLAZINE
     Indication: Angina pectoris
     Route: 065
  2. THEOPHYLLINE [Suspect]
     Active Substance: THEOPHYLLINE
     Indication: Bradycardia
     Route: 065

REACTIONS (4)
  - Bradycardia [Unknown]
  - Off label use [Unknown]
  - Atrioventricular block complete [Unknown]
  - Drug ineffective [Unknown]
